FAERS Safety Report 15666346 (Version 2)
Quarter: 2018Q4

REPORT INFORMATION
  Report Type: Spontaneous
  Country: US (occurrence: US)
  Receive Date: 20181128
  Receipt Date: 20181211
  Transmission Date: 20190205
  Serious: No
  Sender: FDA-Public Use
  Company Number: US-ASTRAZENECA-2018SF43811

PATIENT
  Age: 19543 Day
  Sex: Female
  Weight: 63.5 kg

DRUGS (3)
  1. BYDUREON [Suspect]
     Active Substance: EXENATIDE
     Indication: TYPE 2 DIABETES MELLITUS
     Route: 058
     Dates: start: 2018
  2. ATORVASTATIN [Concomitant]
     Active Substance: ATORVASTATIN
     Indication: BLOOD CHOLESTEROL INCREASED
     Route: 048
  3. BYDUREON BCISE [Suspect]
     Active Substance: EXENATIDE
     Indication: TYPE 2 DIABETES MELLITUS
     Route: 058
     Dates: start: 201809

REACTIONS (9)
  - Intentional device misuse [Unknown]
  - Product dose omission [Recovered/Resolved]
  - Injection site pruritus [Recovered/Resolved]
  - Device malfunction [Unknown]
  - Injection site erythema [Recovered/Resolved]
  - Hunger [Unknown]
  - Injection site haemorrhage [Unknown]
  - Device leakage [Unknown]
  - Injection site pain [Recovered/Resolved]

NARRATIVE: CASE EVENT DATE: 20181018
